FAERS Safety Report 9014171 (Version 2)
Quarter: 2013Q1

REPORT INFORMATION
  Report Type: Spontaneous
  Country: US (occurrence: US)
  Receive Date: 20130115
  Receipt Date: 20130118
  Transmission Date: 20140127
  Serious: Yes (Hospitalization, Other)
  Sender: FDA-Public Use
  Company Number: PHHY2013US002590

PATIENT
  Age: 68 Year
  Sex: Male

DRUGS (3)
  1. TACROLIMUS [Suspect]
     Indication: LUNG TRANSPLANT
  2. CICLOSPORIN [Suspect]
     Indication: LUNG TRANSPLANT
  3. SIROLIMUS [Concomitant]

REACTIONS (10)
  - Asthenia [Recovered/Resolved]
  - Rhabdomyolysis [Recovered/Resolved]
  - Muscular weakness [Recovered/Resolved]
  - Renal failure acute [Recovered/Resolved]
  - Guillain-Barre syndrome [Recovered/Resolved]
  - Demyelinating polyneuropathy [Recovered/Resolved]
  - Hyporeflexia [Recovered/Resolved]
  - Neurotoxicity [Recovered/Resolved]
  - Dyspnoea exertional [Recovered/Resolved]
  - Gait disturbance [Recovered/Resolved]
